FAERS Safety Report 6561951-5 (Version None)
Quarter: 2010Q1

REPORT INFORMATION
  Report Type: 
  Country: None (occurrence: None)
  Receive Date: 20100130
  Receipt Date: 20091102
  Transmission Date: 20100710
  Serious: No
  Sender: FDA-Public Use
  Company Number: US-ABBOTT-09P-163-0594676-00

PATIENT
  Sex: Male
  Weight: 115.77 kg

DRUGS (4)
  1. HUMIRA [Suspect]
     Indication: PSORIASIS
     Dates: start: 20081001
  2. ACLIVATE OINTMENT [Concomitant]
     Indication: DRUG USE FOR UNKNOWN INDICATION
  3. ULTIVATE OINTMENT [Concomitant]
     Indication: DRUG USE FOR UNKNOWN INDICATION
  4. NIACIN FLUSH FREE [Concomitant]
     Indication: DRUG USE FOR UNKNOWN INDICATION

REACTIONS (1)
  - PSORIASIS [None]
